FAERS Safety Report 8758309 (Version 2)
Quarter: 2012Q4

REPORT INFORMATION
  Report Type: 
  Country: US (occurrence: US)
  Receive Date: 20120829
  Receipt Date: 20121008
  Transmission Date: 20130627
  Serious: Yes (Death)
  Sender: FDA-Public Use
  Company Number: PHEH2012US016748

PATIENT
  Age: 53 Year
  Sex: Male

DRUGS (4)
  1. GILENYA [Suspect]
     Indication: MULTIPLE SCLEROSIS
     Dosage: 0.5 mg, QD
     Route: 048
     Dates: start: 20120313
  2. MELOXICAM [Concomitant]
  3. CITALOPRAM [Concomitant]
  4. AMPHETAMINE [Concomitant]

REACTIONS (2)
  - Road traffic accident [Fatal]
  - Multiple injuries [Fatal]
